FAERS Safety Report 5058133-5 (Version None)
Quarter: 2006Q3

REPORT INFORMATION
  Report Type: 
  Country: None (occurrence: None)
  Receive Date: 20060721
  Receipt Date: 20060713
  Transmission Date: 20061208
  Serious: Yes (Hospitalization)
  Sender: FDA-Public Use
  Company Number: FR-GLAXOSMITHKLINE-B0431331A

PATIENT
  Age: 74 Year
  Sex: Male

DRUGS (6)
  1. AVANDIA [Suspect]
     Route: 048
     Dates: start: 20060101, end: 20060101
  2. AVANDAMET [Suspect]
     Route: 048
     Dates: start: 20060101, end: 20060101
  3. COTAREG [Concomitant]
     Route: 065
  4. ZOCOR [Concomitant]
     Route: 065
  5. HYPERIUM [Concomitant]
     Route: 065
  6. DIAMICRON [Concomitant]
     Route: 065

REACTIONS (1)
  - HENOCH-SCHONLEIN PURPURA [None]
